FAERS Safety Report 13681163 (Version 3)
Quarter: 2017Q3

REPORT INFORMATION
  Report Type: Report from Study
  Country: PH (occurrence: PH)
  Receive Date: 20170623
  Receipt Date: 20170908
  Transmission Date: 20171127
  Serious: Yes (Hospitalization)
  Sender: FDA-Public Use
  Company Number: PH-ASTRAZENECA-2017SE64710

PATIENT
  Age: 67 Year
  Sex: Male

DRUGS (2)
  1. IRESSA [Suspect]
     Active Substance: GEFITINIB
     Indication: NEOPLASM
     Dosage: 250.0MG UNKNOWN
     Route: 048
  2. INSULIN [Concomitant]
     Active Substance: INSULIN NOS
     Indication: DIABETES MELLITUS
     Dosage: OD

REACTIONS (2)
  - Pulmonary oedema [Recovering/Resolving]
  - Dyspnoea [Recovered/Resolved]

NARRATIVE: CASE EVENT DATE: 20170514
